FAERS Safety Report 17670430 (Version 1)
Quarter: 2020Q2

REPORT INFORMATION
  Report Type: Spontaneous
  Country: FR (occurrence: FR)
  Receive Date: 20200415
  Receipt Date: 20200415
  Transmission Date: 20200713
  Serious: Yes (Other)
  Sender: FDA-Public Use
  Company Number: FR-TEVA-2020-FR-1223080

PATIENT
  Age: 89 Year
  Sex: Female
  Weight: 43 kg

DRUGS (9)
  1. MEMANTINE ARROW 10 MG, COMPRIME PELLICULE SECABLE [Concomitant]
     Route: 048
     Dates: start: 201710
  2. LOVENOX [Concomitant]
     Active Substance: ENOXAPARIN SODIUM
     Dosage: 0.4 ML
     Route: 058
     Dates: start: 20200204
  3. KARDEGIC [Concomitant]
     Active Substance: ASPIRIN DL-LYSINE
     Dosage: 75 MG
     Route: 048
  4. SERTRALINE ARROW [Concomitant]
     Active Substance: SERTRALINE HYDROCHLORIDE
     Dosage: 25 MG
     Route: 048
     Dates: start: 2017
  5. METFORMINE ARROW 500 MG, COMPRIME PELLICULE [Suspect]
     Active Substance: METFORMIN HYDROCHLORIDE
     Indication: INSULIN-REQUIRING TYPE 2 DIABETES MELLITUS
     Dosage: 1000 MG
     Route: 048
     Dates: start: 20200206, end: 20200210
  6. MOVICOL [Concomitant]
     Active Substance: POLYETHYLENE GLYCOL 3350\POTASSIUM CHLORIDE\SODIUM BICARBONATE\SODIUM CHLORIDE
     Dosage: 2 DF
     Route: 048
     Dates: start: 20200207, end: 20200217
  7. LANTUS [Concomitant]
     Active Substance: INSULIN GLARGINE
     Dosage: 14 IU
     Route: 058
     Dates: start: 201810
  8. PERINDOPRIL ARROW 2 MG COMPRIME [Concomitant]
     Active Substance: PERINDOPRIL ERBUMINE
     Dosage: 2 MG
     Route: 048
     Dates: start: 2019, end: 20200228
  9. DAFALGAN [Concomitant]
     Active Substance: ACETAMINOPHEN
     Dosage: 3 GRAM
     Route: 048
     Dates: end: 20200215

REACTIONS (1)
  - Hepatitis cholestatic [Recovered/Resolved]

NARRATIVE: CASE EVENT DATE: 20200210
